FAERS Safety Report 19879928 (Version 1)
Quarter: 2021Q3

REPORT INFORMATION
  Report Type: Spontaneous
  Country: DE (occurrence: DE)
  Receive Date: 20210924
  Receipt Date: 20210924
  Transmission Date: 20211014
  Serious: Yes (Other)
  Sender: FDA-Public Use
  Company Number: DE-HQ SPECIALTY-DE-2021INT000171

PATIENT

DRUGS (6)
  1. CISPLATIN. [Suspect]
     Active Substance: CISPLATIN
     Indication: OESOPHAGEAL CARCINOMA
     Dosage: 50 MG/M2 (1 H INFUSION) ON WEEKS 1,3,5; 2 CYCLE
     Route: 042
  2. IRINOTECAN [Suspect]
     Active Substance: IRINOTECAN
     Indication: OESOPHAGEAL CARCINOMA
     Dosage: (1 H INFUSION, WEEKLY DURING WEEKS 1?6 AND 8?13)
     Route: 042
  3. CISPLATIN. [Suspect]
     Active Substance: CISPLATIN
     Dosage: 30 MG/M2 DAY 1, 8, 22, 29, 43
     Route: 042
  4. 5?FU                               /00098801/ [Suspect]
     Active Substance: FLUOROURACIL
     Indication: OESOPHAGEAL CARCINOMA
     Dosage: 2 G/M2 (24 H?INFUSION)
     Route: 042
  5. FOLINIC ACID [Suspect]
     Active Substance: LEUCOVORIN
     Indication: OESOPHAGEAL CARCINOMA
     Dosage: (2 H INFUSION)
     Route: 042
  6. IRINOTECAN [Suspect]
     Active Substance: IRINOTECAN
     Dosage: 60 MG/M2 ON DAY 1, 8, 22, 29, 43
     Route: 042

REACTIONS (1)
  - Bradycardia [Unknown]
